FAERS Safety Report 8281540-4 (Version None)
Quarter: 2012Q2

REPORT INFORMATION
  Report Type: 
  Country: None (occurrence: None)
  Receive Date: 20120413
  Receipt Date: 20120402
  Transmission Date: 20120825
  Serious: Yes (Hospitalization)
  Sender: FDA-Public Use
  Company Number: US-JNJFOC-20120401618

PATIENT
  Sex: Male
  Weight: 83.4 kg

DRUGS (6)
  1. CALCIUM CARBONATE [Concomitant]
  2. REMICADE [Suspect]
     Indication: CROHN'S DISEASE
     Route: 042
     Dates: start: 20120127
  3. REMICADE [Suspect]
     Route: 042
     Dates: start: 20090207, end: 20101208
  4. MESALAMINE [Concomitant]
     Route: 048
  5. HUMIRA [Concomitant]
     Indication: CROHN'S DISEASE
     Dates: start: 20101203
  6. ASCORBIC ACID [Concomitant]

REACTIONS (7)
  - ECONOMIC PROBLEM [None]
  - CONDITION AGGRAVATED [None]
  - DRUG INEFFECTIVE [None]
  - WEIGHT DECREASED [None]
  - CROHN'S DISEASE [None]
  - GASTRITIS [None]
  - COLITIS [None]
